FAERS Safety Report 10025925 (Version 1)
Quarter: 2014Q1

REPORT INFORMATION
  Report Type: Spontaneous
  Country: DE (occurrence: None)
  Receive Date: 20140314
  Receipt Date: 20140314
  Transmission Date: 20141002
  Serious: Yes (Other)
  Sender: FDA-Public Use
  Company Number: 1403-0507

PATIENT
  Age: 83 Year
  Sex: Female

DRUGS (1)
  1. EYLEA [Suspect]
     Indication: AGE-RELATED MACULAR DEGENERATION
     Dates: start: 201210

REACTIONS (4)
  - Dizziness [None]
  - Feeling drunk [None]
  - Road traffic accident [None]
  - Fall [None]
